FAERS Safety Report 8593801 (Version 2)
Quarter: 2013Q3

REPORT INFORMATION
  Report Type: Report from Study
  Country: KR (occurrence: KR)
  Receive Date: 20120604
  Receipt Date: 20130731
  Transmission Date: 20140515
  Serious: Yes (Hospitalization)
  Sender: FDA-Public Use
  Company Number: PHHO2012KR007043

PATIENT
  Age: 60 Year
  Sex: Male
  Weight: 62.1 kg

DRUGS (3)
  1. ERL 080A [Suspect]
     Indication: RENAL TRANSPLANT
     Dosage: 1440 MG, UNK
     Route: 048
     Dates: start: 20120202, end: 20120422
  2. NEORAL [Suspect]
     Indication: RENAL TRANSPLANT
     Dosage: 100 MG, QD
     Route: 048
     Dates: start: 20120131
  3. PRANDIN [Concomitant]
     Indication: IMMUNOSUPPRESSION
     Dosage: 12 MG, QD
     Route: 048
     Dates: start: 20120405

REACTIONS (2)
  - Nephropathy toxic [Recovered/Resolved]
  - Urinary tract infection [Recovered/Resolved]
